FAERS Safety Report 25537519 (Version 1)
Quarter: 2025Q3

REPORT INFORMATION
  Report Type: Spontaneous
  Country: US (occurrence: US)
  Receive Date: 20250710
  Receipt Date: 20250710
  Transmission Date: 20251020
  Serious: Yes (Hospitalization, Other)
  Sender: CSL BEHRING
  Company Number: US-BEH-2025212041

PATIENT
  Age: 54 Year
  Sex: Female
  Weight: 60 kg

DRUGS (1)
  1. MIRCERA [Suspect]
     Active Substance: METHOXY POLYETHYLENE GLYCOL-EPOETIN BETA
     Indication: Nephrogenic anaemia
     Dosage: 30 ?G, QOW
     Route: 040
     Dates: start: 20250628, end: 20250628

REACTIONS (5)
  - Drug hypersensitivity [Unknown]
  - Somnolence [Unknown]
  - Dyspnoea [Unknown]
  - Depressed level of consciousness [Unknown]
  - Chest pain [Unknown]

NARRATIVE: CASE EVENT DATE: 20250628
